FAERS Safety Report 6341921-2 (Version None)
Quarter: 2009Q3

REPORT INFORMATION
  Report Type: 
  Country: None (occurrence: None)
  Receive Date: 20090904
  Receipt Date: 20090828
  Transmission Date: 20100115
  Serious: Yes (Hospitalization)
  Sender: FDA-Public Use
  Company Number: PHHO2009SE10658

PATIENT
  Sex: Male

DRUGS (4)
  1. SANDIMMUNE [Suspect]
     Indication: RENAL TRANSPLANT
     Dosage: 125 MG, BID
     Route: 048
     Dates: start: 20090415
  2. NO TREATMENT RECEIVED NOMED [Suspect]
     Dosage: UNK
     Route: 048
  3. PREDNISOLONE [Concomitant]
     Indication: IMMUNOSUPPRESSION
  4. MYFORTIC [Concomitant]
     Indication: IMMUNOSUPPRESSION

REACTIONS (2)
  - C-REACTIVE PROTEIN INCREASED [None]
  - LEUKOPENIA [None]
